FAERS Safety Report 17106415 (Version 2)
Quarter: 2019Q4

REPORT INFORMATION
  Report Type: Spontaneous
  Country: DE (occurrence: DE)
  Receive Date: 20191203
  Receipt Date: 20191206
  Transmission Date: 20200122
  Serious: Yes (Hospitalization)
  Sender: FDA-Public Use
  Company Number: DE-MYLANLABS-2019M1116717

PATIENT
  Age: 84 Year
  Sex: Female

DRUGS (13)
  1. LEVOTHYROXINUM NATRICUM [Concomitant]
     Dosage: 0.15 MG, 1-0-0, TABLETTEN
     Route: 048
  2. MELPERON [Concomitant]
     Active Substance: MELPERONE
     Dosage: 25 MG, 1-0-0-2, TABLETTEN
     Route: 048
  3. HUMALOG [Concomitant]
     Active Substance: INSULIN LISPRO
     Dosage: 300 IE, NACH PLAN, INJEKTIONS-/INFUSIONSLOSUNG (100 EINHEITEN/ML)
     Route: 058
  4. CALCITRIOL. [Concomitant]
     Active Substance: CALCITRIOL
     Dosage: 0.25 ?G, 1-0-0, KAPSELN
     Route: 048
  5. DICLOFENAC [Suspect]
     Active Substance: DICLOFENAC
     Indication: PRODUCT USED FOR UNKNOWN INDICATION
     Dosage: 75 MG, 1-0-1, RETARD-TABLETTEN
     Route: 048
  6. SEVELAMER [Concomitant]
     Active Substance: SEVELAMER
     Dosage: 800 MG, 2-2-2, TABLETTEN
     Route: 048
  7. PANTOPRAZOL                        /01263201/ [Concomitant]
     Active Substance: PANTOPRAZOLE
     Dosage: 20 MG, 1-0-0, TABLETTEN
     Route: 048
  8. FENTANYL. [Concomitant]
     Active Substance: FENTANYL
     Dosage: 50 ?G/H, ALLE 3 TAGE, PFLASTER TRANSDERMAL
     Route: 062
  9. MOXONIDIN [Concomitant]
     Active Substance: MOXONIDINE
     Dosage: .2 MG, 1-0-1, TABLETTEN
     Route: 048
  10. RAMIPRIL. [Concomitant]
     Active Substance: RAMIPRIL
     Dosage: 5 MG, 1-0-1, TABLETTEN
     Route: 048
  11. HYDROCHLOROTHIAZID [Concomitant]
     Active Substance: HYDROCHLOROTHIAZIDE
     Dosage: 25 MG, 1-0-0, TABLETTEN
     Route: 048
  12. TORASEMID [Concomitant]
     Active Substance: TORSEMIDE
     Dosage: 10 MG, 2-0-0, TABLETTEN
     Route: 048
  13. AMLODIPIN                          /00972401/ [Concomitant]
     Active Substance: AMLODIPINE BESYLATE
     Dosage: 5 MG, 1-0-0, TABLETTEN
     Route: 048

REACTIONS (3)
  - Musculoskeletal pain [Unknown]
  - Contraindicated product administered [Unknown]
  - Product prescribing error [Unknown]

NARRATIVE: CASE EVENT DATE: 20171205
